FAERS Safety Report 6612310-8 (Version None)
Quarter: 2010Q1

REPORT INFORMATION
  Report Type: 
  Country: None (occurrence: None)
  Receive Date: 20100303
  Receipt Date: 20100225
  Transmission Date: 20100710
  Serious: Yes (Hospitalization)
  Sender: FDA-Public Use
  Company Number: DE-SANOFI-AVENTIS-2010SA009393

PATIENT
  Age: 53 Year
  Sex: Male
  Weight: 55.6 kg

DRUGS (6)
  1. LANTUS [Suspect]
     Route: 058
     Dates: start: 20020101, end: 20020101
  2. GLUCOPHAGE [Concomitant]
     Indication: DRUG USE FOR UNKNOWN INDICATION
     Route: 048
     Dates: end: 20020101
  3. GLUCOPHAGE [Concomitant]
     Route: 048
     Dates: start: 20020101
  4. PANCREATIN [Concomitant]
     Route: 048
     Dates: end: 20020101
  5. PANCREATIN [Concomitant]
     Route: 048
     Dates: start: 20020101
  6. VITAMIN B COMPLEX CAP [Concomitant]
     Indication: DRUG USE FOR UNKNOWN INDICATION
     Route: 048
     Dates: end: 20020101

REACTIONS (3)
  - INFLAMMATION [None]
  - PERICARDIAL EFFUSION [None]
  - PYREXIA [None]
